FAERS Safety Report 23235577 (Version 2)
Quarter: 2024Q1

REPORT INFORMATION
  Report Type: Spontaneous
  Country: US (occurrence: US)
  Receive Date: 20231128
  Receipt Date: 20240308
  Transmission Date: 20240410
  Serious: No
  Sender: FDA-Public Use
  Company Number: US-PFIZER INC-202300377418

PATIENT
  Age: 74 Year
  Sex: Female

DRUGS (1)
  1. IBRANCE [Suspect]
     Active Substance: PALBOCICLIB
     Dosage: 125 MG, CYCLIC, TAKE 1 TABLET (125 MG TOTAL) BY MOUTH DAILY FOR 21 DAYS

REACTIONS (6)
  - Myalgia [Unknown]
  - Bone pain [Unknown]
  - Pain in extremity [Unknown]
  - Arthralgia [Unknown]
  - Spinal stenosis [Unknown]
  - Condition aggravated [Unknown]
